FAERS Safety Report 8925842 (Version 1)
Quarter: 2012Q4

REPORT INFORMATION
  Report Type: 
  Country: JP (occurrence: JP)
  Receive Date: 20121126
  Receipt Date: 20121126
  Transmission Date: 20130627
  Serious: Yes (Other)
  Sender: FDA-Public Use
  Company Number: PHHY2012JP106897

PATIENT
  Age: 1 Month

DRUGS (3)
  1. TEGRETOL [Suspect]
     Indication: CONVULSION
     Dosage: UNK UKN, UNK
     Route: 048
  2. SODIUM VALPROATE [Concomitant]
     Indication: CONVULSION
     Dosage: UNK UKN, UNK
     Route: 048
  3. PHENOBARBITAL [Concomitant]
     Indication: CONVULSION
     Dosage: UNK UKN, UNK
     Route: 048

REACTIONS (1)
  - Fanconi syndrome [Unknown]
